FAERS Safety Report 8539725-5 (Version None)
Quarter: 2012Q3

REPORT INFORMATION
  Report Type: 
  Country: None (occurrence: None)
  Receive Date: 20120726
  Receipt Date: 20110930
  Transmission Date: 20120928
  Serious: No
  Sender: FDA-Public Use
  Company Number: US-ASTRAZENECA-2009UW19646

PATIENT
  Sex: Female
  Weight: 77.1 kg

DRUGS (12)
  1. SEROQUEL [Suspect]
     Indication: DEPRESSION
     Route: 048
     Dates: start: 20080101
  2. VICODIN [Concomitant]
     Indication: PAIN
  3. ESTRASE [Concomitant]
     Indication: OESTROGEN REPLACEMENT THERAPY
  4. SEROQUEL [Suspect]
     Route: 048
  5. XEXEX [Concomitant]
  6. SEROQUEL [Suspect]
     Indication: SLEEP DISORDER
     Route: 048
     Dates: start: 20080101
  7. SEROQUEL [Suspect]
     Route: 048
     Dates: start: 20081201
  8. SEROQUEL [Suspect]
     Route: 048
  9. SEROQUEL [Suspect]
     Route: 048
  10. LISINOPRIL [Concomitant]
  11. SEROQUEL [Suspect]
     Route: 048
     Dates: start: 20081201
  12. SEROQUEL [Suspect]
     Route: 048

REACTIONS (24)
  - CRYING [None]
  - TEARFULNESS [None]
  - DISORIENTATION [None]
  - LETHARGY [None]
  - CONFUSIONAL STATE [None]
  - DEPRESSION [None]
  - AMNESIA [None]
  - ACTIVITIES OF DAILY LIVING IMPAIRED [None]
  - OFF LABEL USE [None]
  - SOCIAL AVOIDANT BEHAVIOUR [None]
  - NIGHTMARE [None]
  - DRUG DOSE OMISSION [None]
  - DRUG INEFFECTIVE FOR UNAPPROVED INDICATION [None]
  - POOR QUALITY SLEEP [None]
  - SUICIDAL IDEATION [None]
  - INSOMNIA [None]
  - FATIGUE [None]
  - APHAGIA [None]
  - NERVOUSNESS [None]
  - PALPITATIONS [None]
  - SOMNOLENCE [None]
  - ANXIETY [None]
  - ABNORMAL BEHAVIOUR [None]
  - DIZZINESS [None]
